FAERS Safety Report 4952689-6 (Version None)
Quarter: 2006Q1

REPORT INFORMATION
  Report Type: 
  Country: None (occurrence: None)
  Receive Date: 20060324
  Receipt Date: 20051017
  Transmission Date: 20060701
  Serious: Yes (Other)
  Sender: FDA-Public Use
  Company Number: US-NOVOPROD-247827

PATIENT
  Age: 12 Year
  Sex: Female
  Weight: 27 kg

DRUGS (3)
  1. NORDITROPIN CARTRIDGES [Suspect]
     Indication: HYPOPITUITARISM
     Dosage: .6 MG, QD
     Route: 058
     Dates: start: 20031001, end: 20040505
  2. NORDITROPIN CARTRIDGES [Suspect]
     Dosage: .8 MG, QD
     Route: 058
     Dates: start: 20040506, end: 20050621
  3. SYNTHROID [Concomitant]
     Indication: HYPOTHYROIDISM
     Route: 048
     Dates: start: 20011101

REACTIONS (1)
  - MYELODYSPLASTIC SYNDROME [None]
